FAERS Safety Report 10013394 (Version 1)
Quarter: 2014Q1

REPORT INFORMATION
  Report Type: Spontaneous
  Country: US (occurrence: US)
  Receive Date: 20140314
  Receipt Date: 20140314
  Transmission Date: 20141002
  Serious: No
  Sender: FDA-Public Use
  Company Number: US-PFIZER INC-2014074486

PATIENT
  Age: 32 Year
  Sex: Female

DRUGS (6)
  1. EFFEXOR XR [Suspect]
     Dosage: UNK
  2. GABAPENTIN [Suspect]
     Dosage: UNK
  3. HALOPERIDOL [Suspect]
     Dosage: UNK
  4. REGLAN [Suspect]
     Dosage: UNK
  5. TOPAMAX [Suspect]
     Dosage: UNK
  6. PROZAC [Suspect]
     Dosage: UNK

REACTIONS (1)
  - Drug hypersensitivity [Unknown]
